FAERS Safety Report 12081045 (Version 3)
Quarter: 2016Q1

REPORT INFORMATION
  Report Type: Spontaneous
  Country: BR (occurrence: BR)
  Receive Date: 20160216
  Receipt Date: 20160329
  Transmission Date: 20160526
  Serious: Yes (Other)
  Sender: FDA-Public Use
  Company Number: BR-JNJFOC-20160206274

PATIENT
  Sex: Female

DRUGS (4)
  1. TYLEX [Suspect]
     Active Substance: ACETAMINOPHEN\CODEINE PHOSPHATE
     Indication: NECK PAIN
     Route: 065
  2. DORFLEX [Suspect]
     Active Substance: CAFFEINE\DIPYRONE\ORPHENADRINE
     Indication: NECK PAIN
     Route: 065
  3. LISADOR [Suspect]
     Active Substance: DIPYRONE\PROMETHAZINE HYDROCHLORIDE
     Indication: NECK PAIN
     Route: 065
  4. MIOSAN [Suspect]
     Active Substance: CYCLOBENZAPRINE
     Indication: NECK PAIN
     Route: 065

REACTIONS (2)
  - Pain [Unknown]
  - Drug ineffective [Unknown]
